FAERS Safety Report 12289289 (Version 1)
Quarter: 2016Q2

REPORT INFORMATION
  Report Type: Spontaneous
  Country: US (occurrence: None)
  Receive Date: 20160420
  Receipt Date: 20160420
  Transmission Date: 20160815
  Serious: Yes (Other)
  Sender: FDA-Public Use
  Company Number: None

PATIENT
  Age: 46 Year
  Sex: Male
  Weight: 81.65 kg

DRUGS (2)
  1. DIGESTIV ENZYMES [Concomitant]
  2. FETZIMA [Suspect]
     Active Substance: LEVOMILNACIPRAN HYDROCHLORIDE
     Indication: MAJOR DEPRESSION
     Dosage: IN THE MORNING
     Route: 048
     Dates: start: 20160412, end: 20160414

REACTIONS (2)
  - Testicular swelling [None]
  - Testicular pain [None]

NARRATIVE: CASE EVENT DATE: 20160412
